FAERS Safety Report 24436449 (Version 2)
Quarter: 2024Q4

REPORT INFORMATION
  Report Type: Spontaneous
  Country: NL (occurrence: NL)
  Receive Date: 20241015
  Receipt Date: 20241107
  Transmission Date: 20250115
  Serious: No
  Sender: MIRUM PHARMACEUTICALS
  Company Number: NL-MIRUM PHARMACEUTICALS INTERNATIONAL B.V.-NL-MIR-24-00881

PATIENT

DRUGS (4)
  1. LIVMARLI [Suspect]
     Active Substance: MARALIXIBAT CHLORIDE
     Indication: Alagille syndrome
     Dosage: UNK
     Route: 065
     Dates: start: 20240610
  2. URSODIOL [Concomitant]
     Active Substance: URSODIOL
     Indication: Product used for unknown indication
     Dosage: UNK
     Route: 065
  3. RIFAMPIN [Concomitant]
     Active Substance: RIFAMPIN
     Indication: Product used for unknown indication
     Dosage: UNK
     Route: 065
  4. HYDROXYZINE [Concomitant]
     Active Substance: HYDROXYZINE HYDROCHLORIDE
     Indication: Product used for unknown indication
     Dosage: UNK
     Route: 065

REACTIONS (3)
  - Bile acids abnormal [Unknown]
  - Pruritus [Unknown]
  - Drug ineffective [Unknown]
